FAERS Safety Report 6488126-2 (Version None)
Quarter: 2009Q4

REPORT INFORMATION
  Report Type: 
  Country: None (occurrence: None)
  Receive Date: 20091210
  Receipt Date: 20091203
  Transmission Date: 20100525
  Serious: Yes (Congenital Anomaly)
  Sender: FDA-Public Use
  Company Number: A0681607A

PATIENT
  Sex: Female

DRUGS (3)
  1. PAXIL [Suspect]
     Indication: ANXIETY
     Dosage: 20MG PER DAY
  2. VITAMIN TAB [Concomitant]
  3. SUDAFED 12 HOUR [Concomitant]
     Dates: start: 20011201

REACTIONS (4)
  - DRUG EXPOSURE DURING PREGNANCY [None]
  - HEART DISEASE CONGENITAL [None]
  - MULTIPLE CONGENITAL ABNORMALITIES [None]
  - PATENT DUCTUS ARTERIOSUS [None]
